FAERS Safety Report 7119290-X (Version None)
Quarter: 2010Q4

REPORT INFORMATION
  Report Type: 
  Country: None (occurrence: None)
  Receive Date: 20101123
  Receipt Date: 20101122
  Transmission Date: 20110411
  Serious: Yes (Hospitalization, Other)
  Sender: FDA-Public Use
  Company Number: US-ROXANE LABORATORIES, INC.-2010-RO-01171RO

PATIENT
  Sex: Male
  Weight: 78 kg

DRUGS (12)
  1. PREDNISONE [Suspect]
     Indication: PROSTATE CANCER METASTATIC
     Dosage: 10 MG
     Route: 048
     Dates: start: 20090819, end: 20100414
  2. AMLODIPINE [Suspect]
  3. CALCIUM CARBONATE [Suspect]
  4. ATROPINE D [Suspect]
     Dates: start: 20100416
  5. RAMUCIRUMAB(1121B) [Suspect]
     Indication: PROSTATE CANCER METASTATIC
     Route: 042
     Dates: start: 20090819, end: 20100414
  6. MITOXANTRONE [Suspect]
     Indication: PROSTATE CANCER METASTATIC
     Route: 042
     Dates: start: 20090819, end: 20100414
  7. VITAMIN D2 [Concomitant]
     Dates: start: 20090101
  8. IRON [Concomitant]
     Dates: start: 20090801
  9. LACTAID [Concomitant]
  10. MULTI-VITAMIN [Concomitant]
     Dates: start: 20090101
  11. AREDIA [Concomitant]
     Dates: start: 20100401
  12. HYDROCHLOROTHIAZIDE [Concomitant]

REACTIONS (11)
  - ATRIAL FIBRILLATION [None]
  - CARDIAC FAILURE ACUTE [None]
  - CHEST PAIN [None]
  - CONDUCTION DISORDER [None]
  - ELECTROCARDIOGRAM QT PROLONGED [None]
  - ELECTROCARDIOGRAM T WAVE ABNORMAL [None]
  - HEART VALVE INCOMPETENCE [None]
  - METASTASES TO BONE [None]
  - PERICARDIAL EFFUSION [None]
  - PLEURAL EFFUSION [None]
  - SINUS TACHYCARDIA [None]
